FAERS Safety Report 10605798 (Version 2)
Quarter: 2014Q4

REPORT INFORMATION
  Report Type: Spontaneous
  Country: JP (occurrence: JP)
  Receive Date: 20141125
  Receipt Date: 20141202
  Transmission Date: 20150529
  Serious: Yes (Life-Threatening)
  Sender: FDA-Public Use
  Company Number: JP-BEH-2014046765

PATIENT
  Age: 67 Year
  Sex: Male

DRUGS (5)
  1. ZYVOX [Concomitant]
     Active Substance: LINEZOLID
     Indication: MENINGITIS STAPHYLOCOCCAL
     Route: 042
     Dates: start: 20141116
  2. ALBUMINAR [Suspect]
     Active Substance: ALBUMIN (HUMAN)
     Indication: FLUID REPLACEMENT
     Route: 042
     Dates: start: 20141117, end: 20141118
  3. OMEGACIN [Concomitant]
     Active Substance: BIAPENEM
     Indication: SEPSIS
     Route: 042
     Dates: start: 20141116, end: 20141119
  4. DOPAMINE HYDROCHLORIDE. [Concomitant]
     Active Substance: DOPAMINE HYDROCHLORIDE
     Indication: BLOOD PRESSURE DECREASED
     Route: 042
     Dates: start: 20141115
  5. ALBUMINAR [Suspect]
     Active Substance: ALBUMIN (HUMAN)
     Indication: BLOOD PRESSURE DECREASED
     Route: 041
     Dates: start: 20141119, end: 20141119

REACTIONS (6)
  - Pyrexia [Recovered/Resolved]
  - Chills [Recovered/Resolved]
  - Infection [Recovered/Resolved]
  - Body temperature increased [Recovered/Resolved]
  - Oxygen saturation decreased [Recovered/Resolved]
  - Tremor [Recovered/Resolved]

NARRATIVE: CASE EVENT DATE: 20141119
